FAERS Safety Report 8166018-0 (Version None)
Quarter: 2012Q1

REPORT INFORMATION
  Report Type: 
  Country: None (occurrence: None)
  Receive Date: 20120227
  Receipt Date: 20110303
  Transmission Date: 20120608
  Serious: No
  Sender: FDA-Public Use
  Company Number: US-MYLANLABS-2011S1002951

PATIENT
  Age: 20 Year
  Sex: Male
  Weight: 81.65 kg

DRUGS (1)
  1. AMNESTEEM [Suspect]
     Indication: ACNE CYSTIC
     Route: 048

REACTIONS (2)
  - MALAISE [None]
  - ANXIETY [None]
